FAERS Safety Report 6907166-X (Version None)
Quarter: 2010Q3

REPORT INFORMATION
  Report Type: 
  Country: None (occurrence: None)
  Receive Date: 20100804
  Receipt Date: 20090812
  Transmission Date: 20110219
  Serious: No
  Sender: FDA-Public Use
  Company Number: US-PFIZER INC-2009232748

PATIENT
  Sex: Female
  Weight: 63.5 kg

DRUGS (1)
  1. CLEOCIN [Suspect]
     Indication: VULVOVAGINAL MYCOTIC INFECTION
     Dosage: 100 MG, 1X/DAY
     Route: 067
     Dates: start: 20090623, end: 20090623

REACTIONS (3)
  - VULVOVAGINAL BURNING SENSATION [None]
  - VULVOVAGINAL DISCOMFORT [None]
  - VULVOVAGINAL PRURITUS [None]
